FAERS Safety Report 6342245-X (Version None)
Quarter: 2009Q3

REPORT INFORMATION
  Report Type: 
  Country: None (occurrence: None)
  Receive Date: 20090903
  Receipt Date: 20090903
  Transmission Date: 20100115
  Serious: Yes (Hospitalization)
  Sender: FDA-Public Use
  Company Number: None

PATIENT
  Sex: Male
  Weight: 102 kg

DRUGS (2)
  1. CISPLATIN [Suspect]
     Dosage: 331.5 MG
     Dates: end: 20090817
  2. TAXOL [Suspect]
     Dosage: 663 MG
     Dates: end: 20090817

REACTIONS (4)
  - HICCUPS [None]
  - HYPOPHAGIA [None]
  - NAUSEA [None]
  - VOMITING [None]
